FAERS Safety Report 4736911-7 (Version None)
Quarter: 2005Q3

REPORT INFORMATION
  Report Type: 
  Country: None (occurrence: None)
  Receive Date: 20050808
  Receipt Date: 20050606
  Transmission Date: 20060218
  Serious: Yes (Hospitalization)
  Sender: FDA-Public Use
  Company Number: DE-SANOFI-SYNTHELABO-F04200500085

PATIENT
  Sex: Male
  Weight: 77 kg

DRUGS (4)
  1. ELOXATIN [Suspect]
     Indication: RECTAL CANCER
     Route: 041
     Dates: start: 20041215, end: 20041215
  2. CAPECITABINE [Suspect]
     Indication: RECTAL CANCER
     Route: 048
     Dates: start: 20041208, end: 20041221
  3. VITAMINE B6 [Concomitant]
     Indication: PROPHYLAXIS
     Dosage: UNK
     Route: 065
     Dates: start: 20041201
  4. NAVOBAN [Concomitant]
     Indication: PROPHYLAXIS OF NAUSEA AND VOMITING
     Dosage: UNK
     Route: 065
     Dates: start: 20041201

REACTIONS (4)
  - ACUTE PRERENAL FAILURE [None]
  - DEHYDRATION [None]
  - DIARRHOEA [None]
  - NEOPLASM PROGRESSION [None]
